FAERS Safety Report 18733854 (Version 1)
Quarter: 2021Q1

REPORT INFORMATION
  Report Type: Spontaneous
  Country: JP (occurrence: JP)
  Receive Date: 20210113
  Receipt Date: 20210113
  Transmission Date: 20210419
  Serious: Yes (Other)
  Sender: FDA-Public Use
  Company Number: JP-ALKEM LABORATORIES LIMITED-JP-ALKEM-2020-09278

PATIENT
  Age: 37 Year
  Sex: Female

DRUGS (3)
  1. FINGOLIMOD. [Suspect]
     Active Substance: FINGOLIMOD
     Dosage: UNK
     Route: 065
  2. FINGOLIMOD. [Suspect]
     Active Substance: FINGOLIMOD
     Indication: RELAPSING-REMITTING MULTIPLE SCLEROSIS
     Dosage: UNK
     Route: 065
  3. DIMETHYLFUMARATE [Suspect]
     Active Substance: DIMETHYL FUMARATE
     Indication: RELAPSING-REMITTING MULTIPLE SCLEROSIS
     Dosage: UNK
     Route: 065

REACTIONS (6)
  - Hypoaesthesia [Recovered/Resolved]
  - Primary biliary cholangitis [Recovered/Resolved]
  - Condition aggravated [Recovered/Resolved]
  - Multiple sclerosis relapse [Recovered/Resolved]
  - Exposure during pregnancy [Unknown]
  - Liver disorder [Recovered/Resolved]
